FAERS Safety Report 10872812 (Version 1)
Quarter: 2015Q1

REPORT INFORMATION
  Report Type: Spontaneous
  Country: TW (occurrence: TW)
  Receive Date: 20150227
  Receipt Date: 20150227
  Transmission Date: 20150721
  Serious: Yes (Hospitalization, Other)
  Sender: FDA-Public Use
  Company Number: TW-PAR PHARMACEUTICAL, INC-2015SCPR010385

PATIENT

DRUGS (1)
  1. KETALAR [Suspect]
     Active Substance: KETAMINE HYDROCHLORIDE
     Indication: SUBSTANCE USE
     Dosage: UNK UNK, UNKNOWN
     Route: 065

REACTIONS (7)
  - Cystitis [Unknown]
  - Hypertonic bladder [Unknown]
  - Drug abuse [Unknown]
  - Hydronephrosis [Unknown]
  - Hypersensitivity [Unknown]
  - Lower urinary tract symptoms [Unknown]
  - Reduced bladder capacity [Unknown]
